FAERS Safety Report 15629657 (Version 1)
Quarter: 2018Q4

REPORT INFORMATION
  Report Type: Spontaneous
  Country: US (occurrence: US)
  Receive Date: 20181117
  Receipt Date: 20181117
  Transmission Date: 20190205
  Serious: Yes (Other)
  Sender: FDA-Public Use
  Company Number: US-ACCORD-092693

PATIENT
  Age: 73 Year
  Sex: Male

DRUGS (13)
  1. BUPIVACAINE. [Concomitant]
     Active Substance: BUPIVACAINE
     Indication: LOCAL ANAESTHESIA
     Dosage: TWELVE ML OF A 1:1 MIXTURE OF 1% LIDOCAINE AND 0.5% BUPIVACAINE, IN THE GROIN
     Route: 058
  2. LOPERAMIDE [Concomitant]
     Active Substance: LOPERAMIDE
  3. PANTOPRAZOLE [Concomitant]
     Active Substance: PANTOPRAZOLE
  4. TAMSULOSIN/TAMSULOSIN HYDROCHLORIDE [Concomitant]
  5. ONDANSETRON [Suspect]
     Active Substance: ONDANSETRON
     Indication: PROCEDURAL NAUSEA
  6. METFORMIN [Concomitant]
     Active Substance: METFORMIN HYDROCHLORIDE
  7. PROPOFOL. [Concomitant]
     Active Substance: PROPOFOL
     Indication: SEDATION
  8. LIDOCAINE. [Suspect]
     Active Substance: LIDOCAINE
     Indication: LOCAL ANAESTHESIA
     Dosage: 1(1/4) BAGS OF A TUMESCENT SOLUTION HAD BEEN ADMINISTERED,
  9. METOPROLOL. [Concomitant]
     Active Substance: METOPROLOL
  10. GLIPIZIDE. [Concomitant]
     Active Substance: GLIPIZIDE
  11. SIMVASTATIN. [Concomitant]
     Active Substance: SIMVASTATIN
  12. FENTANYL. [Concomitant]
     Active Substance: FENTANYL
     Indication: SEDATION
  13. LISINOPRIL. [Concomitant]
     Active Substance: LISINOPRIL

REACTIONS (6)
  - Hypoacusis [Recovered/Resolved]
  - Sinus tachycardia [Recovered/Resolved]
  - Dysarthria [Recovered/Resolved]
  - Blood pressure increased [Recovered/Resolved]
  - Muscle rigidity [Recovered/Resolved]
  - Dystonia [Recovered/Resolved]
